FAERS Safety Report 6084422-1 (Version None)
Quarter: 2009Q1

REPORT INFORMATION
  Report Type: 
  Country: None (occurrence: None)
  Receive Date: 20090219
  Receipt Date: 20090211
  Transmission Date: 20090719
  Serious: Yes (Other)
  Sender: FDA-Public Use
  Company Number: B0558090A

PATIENT
  Age: 69 Year
  Sex: Female

DRUGS (5)
  1. AMOXICILLIN AND CLAVULANATE POTASSIUM [Suspect]
     Indication: KIDNEY INFECTION
     Dosage: 500MG TWICE PER DAY
     Route: 048
     Dates: start: 20010101
  2. NIMESULIDE [Concomitant]
     Dates: start: 20070101
  3. ELTROXIN [Concomitant]
     Indication: DRUG USE FOR UNKNOWN INDICATION
     Route: 065
  4. NUSEAL ASPIRIN [Concomitant]
     Indication: DRUG USE FOR UNKNOWN INDICATION
     Route: 065
  5. INSULIN [Concomitant]
     Indication: DRUG USE FOR UNKNOWN INDICATION
     Route: 065

REACTIONS (2)
  - JAUNDICE [None]
  - LIVER DISORDER [None]
